FAERS Safety Report 24358121 (Version 3)
Quarter: 2024Q4

REPORT INFORMATION
  Report Type: Report from Study
  Country: US (occurrence: US)
  Receive Date: 20240924
  Receipt Date: 20241023
  Transmission Date: 20250114
  Serious: Yes (Death)
  Sender: ROCHE
  Company Number: US-ROCHE-10000077406

PATIENT
  Age: 53 Year
  Sex: Female
  Weight: 77.11 kg

DRUGS (21)
  1. OCREVUS [Suspect]
     Active Substance: OCRELIZUMAB
     Indication: Relapsing multiple sclerosis
     Dosage: LAST DOSE OF OCRELIZUMAB WAS ADMINISTERED ON -FEB-2024.
     Route: 042
     Dates: start: 20180226
  2. COPAXONE [Concomitant]
     Active Substance: GLATIRAMER ACETATE
  3. TYSABRI [Concomitant]
     Active Substance: NATALIZUMAB
  4. AMPYRA [Concomitant]
     Active Substance: DALFAMPRIDINE
  5. ALBUTEROL SULFATE [Concomitant]
     Active Substance: ALBUTEROL SULFATE
     Indication: Wheezing
  6. ALBUTEROL SULFATE [Concomitant]
     Active Substance: ALBUTEROL SULFATE
     Indication: Dyspnoea
  7. LIORESAL [Concomitant]
     Active Substance: BACLOFEN
     Indication: Muscle spasticity
  8. CHOLECALCIFEROL [Concomitant]
     Active Substance: CHOLECALCIFEROL
     Indication: Vitamin D deficiency
  9. CYANOCOBALAMIN [Concomitant]
     Active Substance: CYANOCOBALAMIN
  10. LUNESTA [Concomitant]
     Active Substance: ESZOPICLONE
  11. PROZAC [Concomitant]
     Active Substance: FLUOXETINE HYDROCHLORIDE
  12. NEURONTIN [Concomitant]
     Active Substance: GABAPENTIN
     Indication: Pain
  13. MOTRIN [Concomitant]
     Active Substance: IBUPROFEN
  14. GLUCOPHAGE [Concomitant]
     Active Substance: METFORMIN HYDROCHLORIDE
     Indication: Type 2 diabetes mellitus
  15. PAMELOR [Concomitant]
     Active Substance: NORTRIPTYLINE HYDROCHLORIDE
     Indication: Neuralgia
  16. REQUIP [Concomitant]
     Active Substance: ROPINIROLE HYDROCHLORIDE
     Indication: Restless legs syndrome
  17. ZOCOR [Concomitant]
     Active Substance: SIMVASTATIN
  18. ZANAFLEX [Concomitant]
     Active Substance: TIZANIDINE HYDROCHLORIDE
     Indication: Muscle spasms
  19. KENALOG [Concomitant]
     Active Substance: TRIAMCINOLONE ACETONIDE
     Indication: Pruritus
  20. MONUROL [Concomitant]
     Active Substance: FOSFOMYCIN TROMETHAMINE
  21. GABLOFEN [Concomitant]
     Active Substance: BACLOFEN

REACTIONS (3)
  - Death [Fatal]
  - Muscular weakness [Unknown]
  - Constipation [Unknown]

NARRATIVE: CASE EVENT DATE: 20240629
